FAERS Safety Report 9660860 (Version 2)
Quarter: 2013Q4

REPORT INFORMATION
  Report Type: Report from Study
  Country: ES (occurrence: ES)
  Receive Date: 20131031
  Receipt Date: 20131031
  Transmission Date: 20140711
  Serious: Yes (Hospitalization)
  Sender: FDA-Public Use
  Company Number: ES-ABBVIE-13P-144-1132730-00

PATIENT
  Age: 37 Year
  Sex: Female

DRUGS (12)
  1. HUMIRA [Suspect]
     Indication: CROHN^S DISEASE
     Dosage: BASELINE
     Route: 058
     Dates: start: 20060227, end: 20060227
  2. HUMIRA [Suspect]
     Dosage: WEEK 2
     Route: 058
  3. HUMIRA [Suspect]
     Route: 058
     Dates: start: 20090202
  4. PREDNISONE [Concomitant]
     Indication: GASTROINTESTINAL INFLAMMATION
     Dates: start: 20090928, end: 20100122
  5. PREDNISONE [Concomitant]
     Indication: PELVIC ABSCESS
     Dates: start: 20130515
  6. PREDNISONE [Concomitant]
     Indication: CHEILITIS GRANULOMATOSA
     Dates: start: 20121017, end: 20121217
  7. PREDNISONE [Concomitant]
     Indication: ANAL FISTULA
  8. HYDROXYCHLOROQUINE [Concomitant]
     Indication: CHEILITIS GRANULOMATOSA
  9. MEROPENEM [Concomitant]
     Indication: PELVIC ABSCESS
     Dates: start: 20130509, end: 20130515
  10. MEROPENEM [Concomitant]
     Dates: start: 20130604, end: 20130720
  11. AUGMENTIN [Concomitant]
     Indication: PELVIC ABSCESS
     Dates: start: 20130516, end: 20130523
  12. METRONIDAZOLE [Concomitant]
     Indication: CHEILITIS GRANULOMATOSA
     Dates: start: 20130116, end: 20130218

REACTIONS (1)
  - Rectal cancer [Not Recovered/Not Resolved]
